FAERS Safety Report 7434369-0 (Version None)
Quarter: 2011Q2

REPORT INFORMATION
  Report Type: 
  Country: None (occurrence: None)
  Receive Date: 20110425
  Receipt Date: 20110413
  Transmission Date: 20111010
  Serious: Yes (Other)
  Sender: FDA-Public Use
  Company Number: US-JNJFOC-20110400028

PATIENT
  Sex: Female
  Weight: 99.79 kg

DRUGS (2)
  1. OXYCODONE [Concomitant]
     Indication: PAIN
     Route: 048
  2. DURAGESIC-50 [Suspect]
     Indication: PAIN
     Route: 062

REACTIONS (2)
  - INCORRECT DRUG ADMINISTRATION DURATION [None]
  - CATARACT [None]
